FAERS Safety Report 6689188 (Version 1)
Quarter: 2020Q3

REPORT INFORMATION
  Report Type: Report from Study
  Country: US (occurrence: US)
  Receive Date: 20080702
  Receipt Date: 20080702
  Transmission Date: 20201104
  Serious: Yes (Other)
  Sender: FDA-Public Use
  Company Number: US-ROCHE-572346

PATIENT
  Age: 63 Year
  Sex: Female

DRUGS (6)
  1. IBANDRONIC ACID. [Suspect]
     Active Substance: IBANDRONIC ACID
     Indication: OSTEOPOROSIS
     Route: 065
     Dates: start: 2007, end: 20080501
  2. MICARDIS HCT [Concomitant]
     Active Substance: HYDROCHLOROTHIAZIDE\TELMISARTAN
  3. EVISTA [Concomitant]
     Active Substance: RALOXIFENE HYDROCHLORIDE
  4. DETROL [Concomitant]
     Active Substance: TOLTERODINE TARTRATE
  5. DYNACIRC [Concomitant]
     Active Substance: ISRADIPINE
  6. FEXOFENADINE [Concomitant]
     Active Substance: FEXOFENADINE HYDROCHLORIDE
     Dosage: DRUG REPORTED AS FEXOFENINE

REACTIONS (1)
  - Jaw disorder [Not Recovered/Not Resolved]
